FAERS Safety Report 5283522-3 (Version None)
Quarter: 2007Q1

REPORT INFORMATION
  Report Type: 
  Country: None (occurrence: None)
  Receive Date: 20070328
  Receipt Date: 20070328
  Transmission Date: 20070707
  Serious: Yes (Other)
  Sender: FDA-Public Use
  Company Number: None

PATIENT
  Age: 76 Year
  Sex: Male
  Weight: 73 kg

DRUGS (8)
  1. LISINOPRIL [Suspect]
  2. GLYBURIDE AND METFORMIN HCL [Concomitant]
  3. LISINOPRIL [Concomitant]
  4. BETAMETHASONE DIPROPIONATE [Concomitant]
  5. CALCIPOTRIENE [Concomitant]
  6. COAL TAR [Concomitant]
  7. FLUVASTATIN NA [Concomitant]
  8. VARDENAFIL HCL [Concomitant]

REACTIONS (1)
  - PRURITUS [None]
